FAERS Safety Report 7840176 (Version 2)
Quarter: 2012Q4

REPORT INFORMATION
  Report Type: Report from Study
  Country: BR (occurrence: BR)
  Receive Date: 20110304
  Receipt Date: 20120828
  Transmission Date: 20130627
  Serious: Yes (Other)
  Sender: FDA-Public Use
  Company Number: BR-AMGEN-BRASP2011011128

PATIENT
  Age: 30 Year
  Sex: Male
  Weight: 81 kg

DRUGS (7)
  1. ETANERCEPT [Suspect]
     Dosage: 50 mg, once weekly
     Route: 058
     Dates: start: 201201, end: 201203
  2. FOLIC ACID [Concomitant]
     Indication: PRODUCT USED FOR UNKNOWN INDICATION
     Dosage: 5 mg, 1x/week
     Dates: start: 2009
  3. PREDNISONE [Concomitant]
     Indication: PAIN
     Dosage: 5 mg, 1x/day
     Dates: start: 2009
  4. HYDROCHLOROTHIAZIDE [Concomitant]
     Indication: HYPERTENSION
     Dosage: 50 mg, 1x/day
     Dates: start: 2010
  5. CALCIUM WITH VITAMIN D             /00944201/ [Concomitant]
     Indication: PROPHYLAXIS
     Dosage: 2x/day
  6. OMEPRAZOLE [Concomitant]
     Indication: PROPHYLAXIS
     Dosage: 20 mg, 1x/day
     Dates: start: 2009
  7. CALCIUM WITH VITAMIN D [Concomitant]
     Indication: PROPHYLAXIS
     Dosage: UNK, 2x/day
     Dates: start: 2009

REACTIONS (9)
  - Arthralgia [Not Recovered/Not Resolved]
  - Swelling [Unknown]
  - Erythema [Unknown]
  - Pain in extremity [Not Recovered/Not Resolved]
  - Poor quality drug administered [Unknown]
  - Wrong technique in drug usage process [Unknown]
  - Injection site warmth [Unknown]
  - Injection site pain [Unknown]
  - Drug ineffective [Not Recovered/Not Resolved]
